FAERS Safety Report 9579627 (Version 4)
Quarter: 2016Q1

REPORT INFORMATION
  Report Type: Report from Study
  Country: US (occurrence: US)
  Receive Date: 20131002
  Receipt Date: 20160217
  Transmission Date: 20160526
  Serious: Yes (Death)
  Sender: FDA-Public Use
  Company Number: US-ROCHE-1257012

PATIENT
  Sex: Female
  Weight: 59.02 kg

DRUGS (3)
  1. CISPLATIN. [Concomitant]
     Active Substance: CISPLATIN
     Indication: GASTRIC CANCER
     Route: 042
     Dates: start: 20130719, end: 20130802
  2. XELODA [Suspect]
     Active Substance: CAPECITABINE
     Indication: GASTRIC CANCER
     Dosage: 01-14 EVERY 21 DAYS, 3 TAB AT AM 4 TAB AT PM
     Route: 048
     Dates: start: 20130719, end: 20130802
  3. XELODA [Suspect]
     Active Substance: CAPECITABINE
     Indication: GASTRIC CANCER

REACTIONS (2)
  - Gastric cancer [Fatal]
  - Dehydration [Unknown]
